FAERS Safety Report 9191491 (Version 4)
Quarter: 2013Q4

REPORT INFORMATION
  Report Type: Spontaneous
  Country: US (occurrence: US)
  Receive Date: 20130326
  Receipt Date: 20131122
  Transmission Date: 20140711
  Serious: Yes (Death, Hospitalization)
  Sender: FDA-Public Use
  Company Number: US-B.I. PHARMACEUTICALS,INC./RIDGEFIELD-2013-BI-08174BP

PATIENT
  Age: 72 Year
  Sex: Female
  Weight: 71.21 kg

DRUGS (16)
  1. PRADAXA [Suspect]
     Indication: ATRIAL FIBRILLATION
     Dosage: 300 MG
     Route: 048
     Dates: start: 20110110, end: 20110324
  2. LISINOPRIL [Concomitant]
     Dosage: 20 MG
     Route: 048
     Dates: start: 2003, end: 201210
  3. ADULT LOW DOSE ASPIRIN [Concomitant]
     Dosage: 81 MG
     Route: 048
     Dates: start: 201101, end: 201210
  4. LEVAQUIN [Concomitant]
     Dates: start: 2001, end: 201105
  5. TEMAZEPAM [Concomitant]
     Dates: start: 200806, end: 201210
  6. PREMARIN [Concomitant]
     Dosage: 0.625 MG
     Route: 048
  7. CARDIZEM [Concomitant]
     Dosage: 120 MG
     Route: 048
  8. XOPENEX [Concomitant]
     Route: 055
  9. FLONASE [Concomitant]
     Dosage: 50 MCG
     Route: 048
  10. ADVAIR DISKUS [Concomitant]
     Route: 048
  11. RESTORIL [Concomitant]
     Dosage: 30 MG
     Route: 048
  12. MINITRAN [Concomitant]
     Route: 061
  13. HYDROCERIN [Concomitant]
     Route: 061
  14. HYDROCHLOROTHIAZIDE [Concomitant]
     Dosage: 25 MG
     Route: 048
  15. SYNTHROID [Concomitant]
     Dosage: 0.05 MG
     Route: 048
  16. SINGULAIR [Concomitant]
     Dosage: 10 MG
     Route: 048

REACTIONS (5)
  - Gastrointestinal haemorrhage [Fatal]
  - Myocardial infarction [Unknown]
  - Hypovolaemic shock [Unknown]
  - Cardiogenic shock [Unknown]
  - Anaemia [Unknown]
